FAERS Safety Report 5909812-6 (Version None)
Quarter: 2008Q4

REPORT INFORMATION
  Report Type: 
  Country: None (occurrence: None)
  Receive Date: 20081007
  Receipt Date: 20080930
  Transmission Date: 20090506
  Serious: Yes (Other)
  Sender: FDA-Public Use
  Company Number: BR-BAYER-200818758LA

PATIENT
  Sex: Male

DRUGS (2)
  1. NEXAVAR [Suspect]
     Indication: RENAL CANCER METASTATIC
     Route: 048
     Dates: start: 20070601
  2. UNKNOWN DRUGS [Concomitant]
     Indication: TUBERCULOSIS

REACTIONS (2)
  - HEPATIC FAILURE [None]
  - TUBERCULOSIS [None]
